FAERS Safety Report 5226482-3 (Version None)
Quarter: 2007Q1

REPORT INFORMATION
  Report Type: 
  Country: None (occurrence: None)
  Receive Date: 20070201
  Receipt Date: 20070116
  Transmission Date: 20070707
  Serious: Yes (Other)
  Sender: FDA-Public Use
  Company Number: US-PFIZER INC-2006120482

PATIENT
  Sex: Female
  Weight: 54.4 kg

DRUGS (3)
  1. CELEBREX [Suspect]
     Indication: OSTEOARTHRITIS
     Route: 048
  2. LEXAPRO [Concomitant]
     Indication: DEPRESSION
  3. VICODIN [Concomitant]

REACTIONS (4)
  - ANXIETY [None]
  - CRYING [None]
  - DEMENTIA [None]
  - GAIT DISTURBANCE [None]
